FAERS Safety Report 9993496 (Version 1)
Quarter: 2014Q1

REPORT INFORMATION
  Report Type: Spontaneous
  Country: US (occurrence: US)
  Receive Date: 20140310
  Receipt Date: 20140310
  Transmission Date: 20141002
  Serious: Yes (Hospitalization)
  Sender: FDA-Public Use
  Company Number: PHEH2014US004747

PATIENT
  Sex: Female

DRUGS (10)
  1. EXELON PATCH [Suspect]
     Indication: AMNESIA
     Dosage: 4.3 MG, QD
  2. EXELON PATCH [Suspect]
     Dosage: 9.5 MG, QD
     Route: 062
  3. EXELON PATCH [Suspect]
     Dosage: 13.5 MG, QD
  4. TREMADOL [Concomitant]
     Dosage: 50 MG, UNK
  5. FENTANYL [Concomitant]
     Dosage: UNK
  6. PREDNISONE [Concomitant]
     Dosage: UNK
  7. AMITRIPTYLENE [Concomitant]
     Dosage: UNK
  8. DONEPEZIL [Concomitant]
     Dosage: UNK
  9. CITALOPRAM [Concomitant]
     Dosage: UNK
  10. VITAMIN D [Concomitant]
     Dosage: UNK

REACTIONS (2)
  - Blood disorder [Unknown]
  - Nausea [Unknown]
